FAERS Safety Report 19160489 (Version 1)
Quarter: 2021Q2

REPORT INFORMATION
  Report Type: Spontaneous
  Country: US (occurrence: US)
  Receive Date: 20210421
  Receipt Date: 20210421
  Transmission Date: 20210717
  Serious: No
  Sender: FDA-Public Use
  Company Number: US-AUROBINDO-AUR-APL-2020-019675

PATIENT
  Sex: Female

DRUGS (2)
  1. MOXIFLOXACIN HYDROCHLORIDE TABLETS 400MG [Suspect]
     Active Substance: MOXIFLOXACIN HYDROCHLORIDE
     Indication: PNEUMONIA
  2. MOXIFLOXACIN HYDROCHLORIDE TABLETS 400MG [Suspect]
     Active Substance: MOXIFLOXACIN HYDROCHLORIDE
     Indication: UPPER RESPIRATORY TRACT INFECTION
     Dosage: UNK
     Route: 065

REACTIONS (3)
  - Pain in jaw [Recovered/Resolved]
  - Irritability [Recovered/Resolved]
  - Tinnitus [Recovered/Resolved]
